FAERS Safety Report 6085409-5 (Version None)
Quarter: 2009Q1

REPORT INFORMATION
  Report Type: 
  Country: None (occurrence: None)
  Receive Date: 20090220
  Receipt Date: 20090212
  Transmission Date: 20090719
  Serious: Yes (Hospitalization)
  Sender: FDA-Public Use
  Company Number: GB-TEVA-185712ISR

PATIENT

DRUGS (2)
  1. MELOXICAM [Suspect]
  2. ACETYLSALICYLIC ACID SRT [Suspect]
     Indication: ANTIPLATELET THERAPY

REACTIONS (1)
  - RECTAL HAEMORRHAGE [None]
